FAERS Safety Report 6500527-2 (Version None)
Quarter: 2009Q4

REPORT INFORMATION
  Report Type: 
  Country: None (occurrence: None)
  Receive Date: 20091216
  Receipt Date: 20091211
  Transmission Date: 20100525
  Serious: Yes (Other)
  Sender: FDA-Public Use
  Company Number: GXKR2009DE13373

PATIENT
  Age: 46 Year
  Sex: Male

DRUGS (3)
  1. DOXYHEXAL (NGX) [Suspect]
     Dosage: 100 MG, UNK
     Route: 048
  2. METOPROLOL SUCCINATE [Concomitant]
     Dosage: 47.5 MG, UNK
     Route: 048
  3. VALPROATE SODIUM [Concomitant]
     Dosage: 500 MG, UNK
     Route: 048

REACTIONS (1)
  - EPILEPSY [None]
